FAERS Safety Report 25612336 (Version 1)
Quarter: 2025Q3

REPORT INFORMATION
  Report Type: Spontaneous
  Country: JP (occurrence: JP)
  Receive Date: 20250728
  Receipt Date: 20250728
  Transmission Date: 20251020
  Serious: Yes (Other)
  Sender: PFIZER
  Company Number: JP-PFIZER INC-PV202500088520

PATIENT
  Age: 64 Year
  Sex: Male

DRUGS (1)
  1. METHOTREXATE SODIUM [Suspect]
     Active Substance: METHOTREXATE SODIUM
     Indication: Rheumatoid arthritis
     Dates: start: 2013, end: 202401

REACTIONS (2)
  - Lymphoproliferative disorder [Recovering/Resolving]
  - Extranodal marginal zone B-cell lymphoma (MALT type) [Recovering/Resolving]

NARRATIVE: CASE EVENT DATE: 20240101
